FAERS Safety Report 13590578 (Version 4)
Quarter: 2017Q3

REPORT INFORMATION
  Report Type: Spontaneous
  Country: DE (occurrence: DE)
  Receive Date: 20170530
  Receipt Date: 20170714
  Transmission Date: 20171127
  Serious: Yes (Hospitalization, Other)
  Sender: FDA-Public Use
  Company Number: DE-TOLMAR, INC.-2017DE006477

PATIENT
  Age: 72 Year
  Sex: Male
  Weight: 90 kg

DRUGS (6)
  1. ASA [Concomitant]
     Active Substance: ASPIRIN
  2. ALLOPURINOL. [Concomitant]
     Active Substance: ALLOPURINOL
  3. METOPROLOL SUCCINATE. [Concomitant]
     Active Substance: METOPROLOL SUCCINATE
  4. ELIGARD [Suspect]
     Active Substance: LEUPROLIDE ACETATE
     Indication: PRODUCT USED FOR UNKNOWN INDICATION
     Dosage: 22.5 MG, Q3MONTHS
     Route: 065
     Dates: start: 20170204
  5. ELIGARD [Suspect]
     Active Substance: LEUPROLIDE ACETATE
     Dosage: 22.5 MG, Q3MONTHS
     Route: 065
     Dates: start: 20170509
  6. RAMIPRIL. [Concomitant]
     Active Substance: RAMIPRIL

REACTIONS (4)
  - Dyspnoea [Unknown]
  - Coronary artery bypass [Unknown]
  - Gait disturbance [Unknown]
  - Coronary artery disease [Recovering/Resolving]

NARRATIVE: CASE EVENT DATE: 201704
